FAERS Safety Report 21526152 (Version 1)
Quarter: 2022Q4

REPORT INFORMATION
  Report Type: Spontaneous
  Country: US (occurrence: US)
  Receive Date: 20221031
  Receipt Date: 20221031
  Transmission Date: 20230113
  Serious: Yes (Other)
  Sender: FDA-Public Use
  Company Number: US-BAXTER-2022BAX022639

PATIENT
  Age: 42 Year
  Sex: Male
  Weight: 60.5 kg

DRUGS (9)
  1. SEVOFLURANE [Suspect]
     Active Substance: SEVOFLURANE
     Indication: General anaesthesia
     Route: 065
  2. DEXTROSE [Suspect]
     Active Substance: DEXTROSE
     Indication: Hyperkalaemia
     Route: 065
  3. INSULIN NOS [Suspect]
     Active Substance: INSULIN NOS
     Indication: Hyperkalaemia
     Route: 065
  4. DEXMEDETOMIDINE [Concomitant]
     Active Substance: DEXMEDETOMIDINE
     Indication: Sedation
     Dosage: 0.7MG/KG/H
     Route: 065
  5. LIDOCAINE [Concomitant]
     Active Substance: LIDOCAINE
     Indication: Local anaesthesia
     Dosage: 4% SPRAY X 20 CC IN DIVIDED DOSES
     Route: 065
  6. PROPOFOL [Concomitant]
     Active Substance: PROPOFOL
     Indication: Induction of anaesthesia
     Dosage: 100 MG
     Route: 042
  7. PROPOFOL [Concomitant]
     Active Substance: PROPOFOL
     Dosage: 150 ?G/KG/MIN
     Route: 042
  8. ROCURONIUM [Concomitant]
     Active Substance: ROCURONIUM BROMIDE
     Indication: Neuromuscular blockade
     Dosage: 50 MG
     Route: 042
  9. REMIFENTANIL [Concomitant]
     Active Substance: REMIFENTANIL
     Dosage: 0.5 ?G/KG/MIN
     Route: 042

REACTIONS (5)
  - Hyperthermia malignant [Recovered/Resolved]
  - Hypercapnia [Recovered/Resolved]
  - Hyperthermia [Recovered/Resolved]
  - Acidosis [Recovered/Resolved]
  - Hyperkalaemia [Recovered/Resolved]
